FAERS Safety Report 7089756-X (Version None)
Quarter: 2010Q4

REPORT INFORMATION
  Report Type: 
  Country: None (occurrence: None)
  Receive Date: 20101108
  Receipt Date: 20100810
  Transmission Date: 20110411
  Serious: No
  Sender: FDA-Public Use
  Company Number: US-ABBOTT-10P-163-0661853-00

PATIENT
  Sex: Male
  Weight: 59.02 kg

DRUGS (17)
  1. TRICOR [Suspect]
     Indication: BLOOD CHOLESTEROL INCREASED
     Dates: end: 20100803
  2. TRICOR [Suspect]
     Dates: start: 20100808
  3. WELCHOL [Concomitant]
     Indication: BLOOD CHOLESTEROL INCREASED
     Dates: start: 20090101
  4. UNKNOWN ANTIHYPERTENSIVE [Concomitant]
     Indication: PRODUCT USED FOR UNKNOWN INDICATION
  5. NORVASC [Concomitant]
     Indication: HYPERTENSION
  6. PLAVIX [Concomitant]
     Indication: CHEST PAIN
  7. AVADORT [Concomitant]
     Indication: PRODUCT USED FOR UNKNOWN INDICATION
  8. BENZAPRIL [Concomitant]
     Indication: HYPERTENSION
  9. CHLORTHALIDONE [Concomitant]
     Indication: PRODUCT USED FOR UNKNOWN INDICATION
  10. ISOSORBIDE DINITRATE [Concomitant]
     Indication: PRODUCT USED FOR UNKNOWN INDICATION
  11. ARICEPT [Concomitant]
     Indication: MEMORY IMPAIRMENT
  12. METOPROLOL SUCCINATE [Concomitant]
     Indication: HYPERTENSION
  13. CENTRUM SILVER [Concomitant]
     Indication: PRODUCT USED FOR UNKNOWN INDICATION
  14. GARLIC [Concomitant]
     Indication: PRODUCT USED FOR UNKNOWN INDICATION
  15. ASCORBIC ACID [Concomitant]
     Indication: PRODUCT USED FOR UNKNOWN INDICATION
  16. ZANTAC [Concomitant]
     Indication: PRODUCT USED FOR UNKNOWN INDICATION
  17. HYDROCORT [Concomitant]
     Indication: GASTROENTERITIS RADIATION

REACTIONS (2)
  - DIARRHOEA [None]
  - WEIGHT DECREASED [None]
